FAERS Safety Report 7654558-X (Version None)
Quarter: 2011Q3

REPORT INFORMATION
  Report Type: 
  Country: None (occurrence: None)
  Receive Date: 20110803
  Receipt Date: 20110729
  Transmission Date: 20111222
  Serious: Yes (Hospitalization, Other)
  Sender: FDA-Public Use
  Company Number: US-MERCK-1010USA01162

PATIENT
  Age: 62 Year
  Sex: Female
  Weight: 80 kg

DRUGS (7)
  1. FOSAMAX [Suspect]
     Indication: OSTEOPENIA
     Route: 048
     Dates: start: 20010612, end: 20080601
  2. FOSAMAX [Suspect]
     Route: 048
     Dates: start: 19950801
  3. FOSAMAX [Suspect]
     Route: 048
     Dates: start: 19950801
  4. VITAMINS (UNSPECIFIED) [Concomitant]
     Route: 065
     Dates: start: 19950101
  5. CALCIUM (UNSPECIFIED) AND VITAMIN D (UNSPECIFIED) [Concomitant]
     Route: 065
     Dates: start: 19950101
  6. FOSAMAX [Suspect]
     Indication: OSTEOPOROSIS
     Route: 048
     Dates: start: 20010612, end: 20080601
  7. PREDNISONE [Concomitant]
     Route: 065
     Dates: start: 19840101

REACTIONS (48)
  - ANXIETY [None]
  - GASTRIC ULCER [None]
  - GAIT DISTURBANCE [None]
  - SCOLIOSIS [None]
  - TENDONITIS [None]
  - DYSPEPSIA [None]
  - INTERVERTEBRAL DISC DEGENERATION [None]
  - SPINAL COLUMN STENOSIS [None]
  - UPPER-AIRWAY COUGH SYNDROME [None]
  - FALL [None]
  - LOW TURNOVER OSTEOPATHY [None]
  - LIMB INJURY [None]
  - ACTINIC KERATOSIS [None]
  - ABDOMINAL DISCOMFORT [None]
  - PNEUMONIA [None]
  - BACK PAIN [None]
  - MUSCLE STRAIN [None]
  - SINUS POLYP [None]
  - CYST [None]
  - RADICULITIS LUMBOSACRAL [None]
  - MELANOCYTIC NAEVUS [None]
  - CARDIOMEGALY [None]
  - MYOCARDIAL INFARCTION [None]
  - URINARY TRACT INFECTION [None]
  - DRUG HYPERSENSITIVITY [None]
  - INTERVERTEBRAL DISC PROTRUSION [None]
  - HYPOACUSIS [None]
  - GASTROOESOPHAGEAL REFLUX DISEASE [None]
  - PAIN [None]
  - NASAL SEPTUM DEVIATION [None]
  - BRONCHITIS CHRONIC [None]
  - FEMUR FRACTURE [None]
  - ANKLE FRACTURE [None]
  - OSTEOARTHRITIS [None]
  - DEVICE FAILURE [None]
  - HAEMOGLOBIN DECREASED [None]
  - ADVERSE DRUG REACTION [None]
  - SINUS DISORDER [None]
  - BURSITIS [None]
  - NAIL AVULSION [None]
  - BASAL CELL CARCINOMA [None]
  - FOOT FRACTURE [None]
  - SPONDYLOLISTHESIS [None]
  - SKIN CANCER [None]
  - COUGH [None]
  - DERMAL CYST [None]
  - SKELETAL INJURY [None]
  - RADICULOPATHY [None]
